FAERS Safety Report 4743941-8 (Version None)
Quarter: 2005Q3

REPORT INFORMATION
  Report Type: 
  Country: None (occurrence: None)
  Receive Date: 20050809
  Receipt Date: 20050727
  Transmission Date: 20060218
  Serious: Yes (Hospitalization)
  Sender: FDA-Public Use
  Company Number: HQWYE587628JUL05

PATIENT
  Age: 49 Year
  Sex: Male

DRUGS (8)
  1. RAPAMUNE [Suspect]
     Indication: PROPHYLAXIS AGAINST TRANSPLANT REJECTION
     Dosage: 9 MG 1X PER 1 DAY
     Route: 048
     Dates: start: 20040915, end: 20040915
  2. METOPROLOL TARTRATE [Concomitant]
  3. AMBROXOL (AMBROXOL) [Concomitant]
  4. FAMOTIDINE [Concomitant]
  5. METHYLPREDNISOLONE (METHYLPREDNISOLONE) [Suspect]
     Indication: PROPHYLAXIS AGAINST TRANSPLANT REJECTION
     Route: 042
     Dates: start: 20040915
  6. MYCOPHENOLATE MOFETIL (MYCOPHENOLATE MOFETIL) [Suspect]
     Indication: PROPHYLAXIS AGAINST TRANSPLANT REJECTION
     Dosage: 1 G 2X PER 1 DAY
     Route: 048
     Dates: start: 20040915, end: 20040917
  7. ZENAPAX [Suspect]
     Indication: PROPHYLAXIS AGAINST TRANSPLANT REJECTION
     Dosage: 165 MG 1X PER 2 WK
     Route: 042
     Dates: start: 20040915
  8. FAMOTIDINE [Concomitant]

REACTIONS (4)
  - IMMUNOSUPPRESSION [None]
  - ISCHAEMIA [None]
  - PANCREATITIS ACUTE [None]
  - REPERFUSION INJURY [None]
